FAERS Safety Report 7660664-6 (Version None)
Quarter: 2011Q3

REPORT INFORMATION
  Report Type: 
  Country: None (occurrence: None)
  Receive Date: 20110805
  Receipt Date: 20101119
  Transmission Date: 20111222
  Serious: No
  Sender: FDA-Public Use
  Company Number: US-ABBOTT-10P-163-0687023-00

PATIENT
  Sex: Male
  Weight: 83.536 kg

DRUGS (10)
  1. NIASPAN [Suspect]
     Indication: HIGH DENSITY LIPOPROTEIN DECREASED
  2. NIASPAN [Suspect]
     Indication: LOW DENSITY LIPOPROTEIN INCREASED
     Dates: start: 20100901
  3. VITAMIN D [Concomitant]
     Indication: VITAMIN SUPPLEMENTATION
  4. TRILIPIX [Concomitant]
     Indication: BLOOD TRIGLYCERIDES INCREASED
  5. TRILIPIX [Concomitant]
     Indication: BLOOD CHOLESTEROL INCREASED
  6. FISH OIL [Concomitant]
     Indication: SUPPLEMENTATION THERAPY
  7. PRAVASTATIN SODIUM [Concomitant]
     Indication: BLOOD CHOLESTEROL INCREASED
  8. PRANDIN [Concomitant]
     Indication: DIABETES MELLITUS
  9. COENZYME Q10 [Concomitant]
     Indication: SUPPLEMENTATION THERAPY
  10. PREVACID [Concomitant]
     Indication: ABDOMINAL DISCOMFORT

REACTIONS (4)
  - DRUG EFFECT DECREASED [None]
  - FLUSHING [None]
  - GLYCOSYLATED HAEMOGLOBIN INCREASED [None]
  - BLOOD GLUCOSE INCREASED [None]
